FAERS Safety Report 5306478-3 (Version None)
Quarter: 2007Q2

REPORT INFORMATION
  Report Type: 
  Country: None (occurrence: None)
  Receive Date: 20070416
  Receipt Date: 20070402
  Transmission Date: 20071010
  Serious: Yes (Death, Hospitalization)
  Sender: FDA-Public Use
  Company Number: CERZ-11555

PATIENT
  Age: 58 Year
  Sex: Female
  Weight: 62 kg

DRUGS (4)
  1. CEREZYME [Suspect]
     Indication: GAUCHER'S DISEASE
     Dosage: 2000 UNITS Q2WKS IV
     Route: 042
     Dates: start: 20060101, end: 20060804
  2. CEREZYME [Suspect]
     Indication: GAUCHER'S DISEASE
     Dosage: 2000 UNITS 1XW IV
     Route: 042
     Dates: start: 20060501
  3. CEREZYME [Suspect]
     Indication: GAUCHER'S DISEASE
     Dosage: 2000 UNITS Q2WKS IV
     Route: 042
     Dates: start: 20040727, end: 20060501
  4. CEREZYME [Suspect]
     Dosage: 1800 UNITS Q2WKS IV
     Route: 042
     Dates: start: 20000228, end: 20011016

REACTIONS (18)
  - BRONCHOPNEUMONIA [None]
  - DISEASE PROGRESSION [None]
  - DISSEMINATED INTRAVASCULAR COAGULATION [None]
  - GALLBLADDER CANCER METASTATIC [None]
  - HAEMANGIOMA [None]
  - HAEMORRHAGE INTRACRANIAL [None]
  - HAEMORRHAGIC DIATHESIS [None]
  - HEADACHE [None]
  - MOUNTAIN SICKNESS ACUTE [None]
  - MULTI-ORGAN FAILURE [None]
  - NOSOCOMIAL INFECTION [None]
  - PLEURAL EFFUSION [None]
  - PLEURAL HAEMORRHAGE [None]
  - PULMONARY OEDEMA [None]
  - RESPIRATORY FAILURE [None]
  - SEPSIS [None]
  - SPLENOMEGALY [None]
  - THROMBOCYTOPENIA [None]
